FAERS Safety Report 5224954-9 (Version None)
Quarter: 2007Q1

REPORT INFORMATION
  Report Type: 
  Country: None (occurrence: None)
  Receive Date: 20070131
  Receipt Date: 20070124
  Transmission Date: 20070707
  Serious: Yes (Other)
  Sender: FDA-Public Use
  Company Number: ES-AVENTIS-200710431EU

PATIENT
  Age: 76 Year
  Sex: Male

DRUGS (9)
  1. SEGURIL                            /00032601/ [Suspect]
     Route: 048
     Dates: start: 20060101, end: 20060101
  2. OMEPRAZOLE [Concomitant]
     Dosage: DOSE: UNKNOWN DOSAGE
  3. ENALAPRIL MALEATE [Concomitant]
     Dosage: DOSE: UNKNOWN DOSAGE
  4. OMNIC [Concomitant]
     Dosage: DOSE: UNKNOWN DOSAGE
  5. URBASON [Concomitant]
     Dosage: DOSE: UNKNOWN DOSAGE
  6. SINTROM [Concomitant]
     Dosage: DOSE: UNKNOWN DOSAGE
  7. TRAMADOL HCL [Concomitant]
  8. BOI K [Concomitant]
  9. CALCIO                             /00108001/ [Concomitant]

REACTIONS (1)
  - RENAL FAILURE ACUTE [None]
